FAERS Safety Report 5285067-3 (Version None)
Quarter: 2007Q2

REPORT INFORMATION
  Report Type: 
  Country: None (occurrence: None)
  Receive Date: 20070403
  Receipt Date: 20070327
  Transmission Date: 20071010
  Serious: Yes (Other)
  Sender: FDA-Public Use
  Company Number: BR-PFIZER INC-2007024636

PATIENT
  Sex: Female

DRUGS (1)
  1. DETROL LA [Suspect]
     Indication: URINARY INCONTINENCE
     Route: 048
     Dates: start: 20070216, end: 20070216

REACTIONS (6)
  - CHEST PAIN [None]
  - EYE DISORDER [None]
  - FLUSHING [None]
  - HEADACHE [None]
  - SINUSITIS [None]
  - THROAT TIGHTNESS [None]
